FAERS Safety Report 21836829 (Version 9)
Quarter: 2024Q1

REPORT INFORMATION
  Report Type: Report from Study
  Country: US (occurrence: US)
  Receive Date: 20230109
  Receipt Date: 20240305
  Transmission Date: 20240410
  Serious: Yes (Hospitalization, Other)
  Sender: FDA-Public Use
  Company Number: US-ARGENX-2022-ARGX-US000684

PATIENT

DRUGS (3)
  1. VYVGART [Suspect]
     Active Substance: EFGARTIGIMOD ALFA-FCAB
     Indication: Myasthenia gravis
     Dosage: 920 MG EVERY WEEK
     Route: 042
     Dates: start: 20220429
  2. CELLCEPT [Concomitant]
     Active Substance: MYCOPHENOLATE MOFETIL
     Indication: Product used for unknown indication
     Route: 065
  3. CELLCEPT [Concomitant]
     Active Substance: MYCOPHENOLATE MOFETIL
     Dosage: DOSE INCREASED
     Route: 065
     Dates: start: 202312

REACTIONS (21)
  - Thymoma [Unknown]
  - Surgery [Unknown]
  - Infusion related reaction [Unknown]
  - Therapy non-responder [Unknown]
  - Tachypnoea [Recovered/Resolved]
  - Wrong dose [Unknown]
  - Dyspnoea [Recovering/Resolving]
  - Muscle spasms [Recovered/Resolved]
  - Hypopnoea [Unknown]
  - Inappropriate schedule of product administration [Unknown]
  - Poor venous access [Unknown]
  - Weight increased [Unknown]
  - Skin lesion [Not Recovered/Not Resolved]
  - Symptom recurrence [Unknown]
  - Asthenia [Recovering/Resolving]
  - Respiratory tract infection [Not Recovered/Not Resolved]
  - Myasthenia gravis [Unknown]
  - COVID-19 [Unknown]
  - Bronchitis [Unknown]
  - Epistaxis [Unknown]
  - Skin disorder [Unknown]

NARRATIVE: CASE EVENT DATE: 20220429
